FAERS Safety Report 4818818-X (Version None)
Quarter: 2005Q4

REPORT INFORMATION
  Report Type: 
  Country: None (occurrence: None)
  Receive Date: 20051101
  Receipt Date: 20051019
  Transmission Date: 20060501
  Serious: Yes (Other)
  Sender: FDA-Public Use
  Company Number: 2005130648

PATIENT
  Sex: Male

DRUGS (4)
  1. XANAX [Suspect]
     Indication: GENERALISED ANXIETY DISORDER
     Dosage: 4 MG (1 MG,1 IN 1 D),ORAL
     Route: 048
     Dates: start: 19890101
  2. ALL OTHER THERAPEUTIC PRODUCTS (ALL OTHER THERAPEUTIC PRODUCTS) [Concomitant]
  3. WELLBUTRIN SR [Concomitant]
  4. ZOLOFT [Concomitant]

REACTIONS (4)
  - CONDITION AGGRAVATED [None]
  - DEPRESSION [None]
  - HEPATIC CIRRHOSIS [None]
  - WEIGHT DECREASED [None]
